FAERS Safety Report 12960427 (Version 1)
Quarter: 2016Q4

REPORT INFORMATION
  Report Type: Spontaneous
  Country: GB (occurrence: GB)
  Receive Date: 20161121
  Receipt Date: 20161121
  Transmission Date: 20170207
  Serious: Yes (Life-Threatening, Other)
  Sender: FDA-Public Use
  Company Number: GB-TEVA-712745ACC

PATIENT
  Age: 18 Year
  Sex: Male
  Weight: 90 kg

DRUGS (8)
  1. NUROFEN PLUS [Concomitant]
     Active Substance: CODEINE PHOSPHATE\IBUPROFEN
     Indication: INTENTIONAL OVERDOSE
     Dosage: 32
  2. PROMETHAZINE [Concomitant]
     Active Substance: PROMETHAZINE\PROMETHAZINE HYDROCHLORIDE
     Indication: INTENTIONAL OVERDOSE
     Dosage: 28
  3. SERTRALINE [Concomitant]
     Active Substance: SERTRALINE HYDROCHLORIDE
     Indication: ANXIETY
     Dosage: 100 MILLIGRAM DAILY; IN THE MORNING.
     Dates: start: 2009
  4. DHC-CONTINUS [Concomitant]
     Active Substance: DIHYDROCODEINE BITARTRATE
     Indication: INTENTIONAL OVERDOSE
     Dosage: 60
  5. LAMOTRIGINE. [Concomitant]
     Active Substance: LAMOTRIGINE
     Indication: IMPULSIVE BEHAVIOUR
     Dosage: 125 MILLIGRAM DAILY; AT NIGHT
     Dates: start: 201607
  6. TRAMADOL. [Concomitant]
     Active Substance: TRAMADOL
     Indication: INTENTIONAL OVERDOSE
     Dosage: 100
  7. PREGABALIN. [Concomitant]
     Active Substance: PREGABALIN
     Indication: ANXIETY
     Dosage: 150 MILLIGRAM DAILY;
     Dates: start: 201607
  8. ZOLPIDEM TARTRATE. [Suspect]
     Active Substance: ZOLPIDEM TARTRATE
     Indication: INSOMNIA
     Dosage: 10 MILLIGRAM DAILY; AT NIGHT. 30
     Dates: start: 20160701, end: 20161016

REACTIONS (6)
  - Depression [Unknown]
  - Suicidal ideation [Recovered/Resolved]
  - Weight increased [Unknown]
  - Sleep-related eating disorder [Recovering/Resolving]
  - Suicide attempt [Recovering/Resolving]
  - Sexually inappropriate behaviour [Recovering/Resolving]
